APPROVED DRUG PRODUCT: AMINOCAPROIC ACID
Active Ingredient: AMINOCAPROIC ACID
Strength: 250MG/ML
Dosage Form/Route: INJECTABLE;INJECTION
Application: N018590 | Product #001
Applicant: BAXTER HEALTHCARE CORP ANESTHESIA AND CRITICAL CARE
Approved: Oct 29, 1982 | RLD: No | RS: No | Type: DISCN